FAERS Safety Report 7276623-1 (Version None)
Quarter: 2011Q1

REPORT INFORMATION
  Report Type: 
  Country: None (occurrence: None)
  Receive Date: 20110204
  Receipt Date: 20110128
  Transmission Date: 20110831
  Serious: Yes (Disabling, Other)
  Sender: FDA-Public Use
  Company Number: BR-BAYER-2011-005332

PATIENT
  Sex: Female
  Weight: 61 kg

DRUGS (1)
  1. MIRENA [Suspect]
     Indication: CONTRACEPTION
     Dosage: 20 MCG/24HR, CONT
     Route: 015
     Dates: start: 20090820

REACTIONS (7)
  - ECTOPIC PREGNANCY [None]
  - NIGHTMARE [None]
  - INSOMNIA [None]
  - AGITATION [None]
  - AMENORRHOEA [None]
  - APHAGIA [None]
  - DISTURBANCE IN ATTENTION [None]
